FAERS Safety Report 25399082 (Version 1)
Quarter: 2025Q2

REPORT INFORMATION
  Report Type: Spontaneous
  Country: US (occurrence: US)
  Receive Date: 20250605
  Receipt Date: 20250605
  Transmission Date: 20250717
  Serious: No
  Sender: STRIDES
  Company Number: US-STRIDES ARCOLAB LIMITED-2025SP003653

PATIENT
  Sex: Male
  Weight: 81.633 kg

DRUGS (3)
  1. SUCRALFATE [Suspect]
     Active Substance: SUCRALFATE
     Indication: Abdominal pain
     Route: 048
     Dates: end: 20250309
  2. PANTOPRAZOLE [Concomitant]
     Active Substance: PANTOPRAZOLE
     Indication: Abdominal pain upper
     Route: 048
  3. CETIRIZINE [Concomitant]
     Active Substance: CETIRIZINE HYDROCHLORIDE
     Indication: Hypersensitivity
     Route: 065

REACTIONS (3)
  - Drug ineffective for unapproved indication [Unknown]
  - Poor quality product administered [Unknown]
  - Product quality issue [Unknown]
